FAERS Safety Report 11643921 (Version 1)
Quarter: 2015Q4

REPORT INFORMATION
  Report Type: Spontaneous
  Country: US (occurrence: None)
  Receive Date: 20151019
  Receipt Date: 20151019
  Transmission Date: 20160304
  Serious: Yes (Other)
  Sender: FDA-Public Use
  Company Number: None

PATIENT
  Age: 39 Year
  Sex: Female
  Weight: 56.25 kg

DRUGS (1)
  1. CIPROFLOXACIN 500MG BAYER [Suspect]
     Active Substance: CIPROFLOXACIN
     Indication: SINUSITIS
     Route: 048
     Dates: start: 20130307, end: 20130307

REACTIONS (13)
  - Abdominal pain upper [None]
  - Hypoaesthesia [None]
  - Anxiety [None]
  - Asthenia [None]
  - Dry mouth [None]
  - Nausea [None]
  - Pain [None]
  - Vision blurred [None]
  - Fatigue [None]
  - Paraesthesia [None]
  - Arthralgia [None]
  - Insomnia [None]
  - Dry eye [None]

NARRATIVE: CASE EVENT DATE: 20130307
